FAERS Safety Report 15364604 (Version 2)
Quarter: 2018Q3

REPORT INFORMATION
  Report Type: Report from Study
  Country: None (occurrence: CH)
  Receive Date: 20180910
  Receipt Date: 20180913
  Transmission Date: 20181010
  Serious: Yes (Other)
  Sender: FDA-Public Use
  Company Number: CH-ABBVIE-18S-151-2447172-00

PATIENT
  Sex: Female

DRUGS (3)
  1. DUODOPA [Suspect]
     Active Substance: CARBIDOPA\LEVODOPA
     Indication: PARKINSON^S DISEASE
     Route: 050
     Dates: start: 20170104, end: 20170113
  2. DUODOPA [Suspect]
     Active Substance: CARBIDOPA\LEVODOPA
     Dosage: MD10ML?CD 4.8ML/H?ED 3ML?16H THERAPY
     Route: 050
     Dates: start: 20170323
  3. DUODOPA [Suspect]
     Active Substance: CARBIDOPA\LEVODOPA
     Dosage: MD 10ML?CD 4.8ML/H?ED 2ML?16TH THERAPY
     Route: 050
     Dates: start: 20170113, end: 20170323

REACTIONS (7)
  - Device dislocation [Recovered/Resolved]
  - Device issue [Unknown]
  - Pleurothotonus [Not Recovered/Not Resolved]
  - Stoma site hypergranulation [Unknown]
  - Fistula [Unknown]
  - Embedded device [Recovered/Resolved]
  - Embedded device [Unknown]

NARRATIVE: CASE EVENT DATE: 2018
